FAERS Safety Report 16018025 (Version 1)
Quarter: 2019Q1

REPORT INFORMATION
  Report Type: Spontaneous
  Country: ZA (occurrence: ZA)
  Receive Date: 20190228
  Receipt Date: 20190228
  Transmission Date: 20190418
  Serious: Yes (Death, Hospitalization, Other)
  Sender: FDA-Public Use
  Company Number: ZA-GILEAD-2019-0392983

PATIENT
  Age: 37 Year
  Sex: Male
  Weight: 59 kg

DRUGS (13)
  1. TENOFOVIR DISOPROXIL FUMARATE. [Suspect]
     Active Substance: TENOFOVIR DISOPROXIL FUMARATE
     Indication: HIV INFECTION
     Dosage: 300 MG, QD
     Route: 065
     Dates: start: 2017
  2. LINEZOLID. [Concomitant]
     Active Substance: LINEZOLID
  3. LEVOFLOXACIN. [Concomitant]
     Active Substance: LEVOFLOXACIN
  4. MOXIFLOXACIN. [Concomitant]
     Active Substance: MOXIFLOXACIN
     Indication: PRODUCT USED FOR UNKNOWN INDICATION
     Route: 065
  5. PYRAZINAMIDE. [Concomitant]
     Active Substance: PYRAZINAMIDE
  6. EMTRICITABINE/TENOFOVIR ALAFENAMIDE [Concomitant]
     Active Substance: EMTRICITABINE\TENOFOVIR
     Indication: HIV INFECTION
     Dosage: 300 MG, QD
     Route: 065
     Dates: start: 2017
  7. DELAMANID [Suspect]
     Active Substance: DELAMANID
     Indication: TUBERCULOSIS
     Dosage: UNK
     Route: 065
     Dates: start: 201801, end: 201807
  8. AMINOSALICYLIC ACID [Concomitant]
     Active Substance: AMINOSALICYLIC ACID
  9. BEDAQUILINE [Concomitant]
     Active Substance: BEDAQUILINE
  10. CLOFAZIMINE [Concomitant]
     Active Substance: CLOFAZIMINE
  11. TERIZIDONE [Concomitant]
     Active Substance: TERIZIDONE
  12. ISONIAZID. [Concomitant]
     Active Substance: ISONIAZID
  13. ETHAMBUTOL [Concomitant]
     Active Substance: ETHAMBUTOL HYDROCHLORIDE

REACTIONS (10)
  - Sudden cardiac death [Fatal]
  - Abdominal distension [Unknown]
  - HIV associated nephropathy [Unknown]
  - Blood albumin decreased [Unknown]
  - Oedema peripheral [Unknown]
  - Splenomegaly [Unknown]
  - Alcohol abuse [Fatal]
  - Pneumonia [Unknown]
  - Weight decreased [Unknown]
  - Platelet count decreased [Unknown]

NARRATIVE: CASE EVENT DATE: 20190127
